FAERS Safety Report 8762594 (Version 1)
Quarter: 2012Q4

REPORT INFORMATION
  Report Type: 
  Country: FR (occurrence: FR)
  Receive Date: 20120830
  Receipt Date: 20120830
  Transmission Date: 20130627
  Serious: Yes (Hospitalization, Other)
  Sender: FDA-Public Use
  Company Number: FR-BAXTER-2012BAX005291

PATIENT
  Age: 30 Year
  Sex: Female

DRUGS (12)
  1. SUPRANE, LIQUIDE POUR INHALATION PAR VAPEUR [Suspect]
     Indication: ANESTHESIA
     Route: 055
     Dates: start: 20120207, end: 20120207
  2. DIPRIVAN [Suspect]
     Indication: GENERAL ANAESTHESIA
     Dates: start: 20120207
  3. ULTIVA [Suspect]
     Indication: GENERAL ANAESTHESIA
     Dates: start: 20120207
  4. ATRACURIUM BESYLATE [Suspect]
     Indication: GENERAL ANAESTHESIA
     Dates: start: 20120207
  5. PARACETAMOL [Suspect]
     Indication: POSTOPERATIVE ANALGESIA
     Dates: start: 20120207
  6. TRAMADOL [Suspect]
     Indication: POSTOPERATIVE ANALGESIA
     Dates: start: 20120207
  7. NEFOPAM [Suspect]
     Indication: POSTOPERATIVE ANALGESIA
     Dates: start: 20120207
  8. OXYCODONE [Suspect]
     Indication: POSTOPERATIVE ANALGESIA
     Dates: start: 20120207
  9. ONDANSETRON [Suspect]
     Indication: PROPHYLAXIS AGAINST POSTOPERATIVE NAUSEA AND VOMITING
     Dates: start: 20120207
  10. DEXAMETHASONE [Suspect]
     Indication: PROPHYLAXIS AGAINST POSTOPERATIVE NAUSEA AND VOMITING
     Dates: start: 20120207
  11. DROLEPTAN [Suspect]
     Indication: PROPHYLAXIS AGAINST POSTOPERATIVE NAUSEA AND VOMITING
     Dates: start: 20120207
  12. CEFAZOLIN [Suspect]
     Indication: ANTIBIOTIC PROPHYLAXIS
     Dates: start: 20120207

REACTIONS (2)
  - Hepatitis [Recovered/Resolved]
  - Hypersensitivity [Recovered/Resolved]
